FAERS Safety Report 17808913 (Version 5)
Quarter: 2020Q3

REPORT INFORMATION
  Report Type: Spontaneous
  Country: PL (occurrence: PL)
  Receive Date: 20200520
  Receipt Date: 20200716
  Transmission Date: 20201102
  Serious: Yes (Life-Threatening, Hospitalization, Other)
  Sender: FDA-Public Use
  Company Number: PL-MYLANLABS-2020M1049021

PATIENT
  Age: 51 Year
  Sex: Female
  Weight: 65 kg

DRUGS (34)
  1. LAMOTRIGINE. [Suspect]
     Active Substance: LAMOTRIGINE
     Indication: DEPRESSION
     Dosage: 50 MILLIGRAM, QD
     Route: 048
     Dates: start: 2017
  2. ARIPIPRAZOLE. [Suspect]
     Active Substance: ARIPIPRAZOLE
     Dosage: 30 MILLIGRAM, QD (FINAL DOSE OF 30 MG/D OVER 2 WEEKS)
  3. LAMOTRIGINE. [Suspect]
     Active Substance: LAMOTRIGINE
     Dosage: 50 MILLIGRAM, QD
  4. ARIPIPRAZOLE. [Suspect]
     Active Substance: ARIPIPRAZOLE
     Indication: DELUSION
     Dosage: 30 MILLIGRAM, QD (FINAL DOSE OF 30 MG/D OVER 2 WEEKS)
     Route: 048
     Dates: start: 2017
  5. LITHIUM. [Suspect]
     Active Substance: LITHIUM
     Indication: MOOD SWINGS
  6. FLUOXETINE [Suspect]
     Active Substance: FLUOXETINE HYDROCHLORIDE
     Indication: BIPOLAR DISORDER
  7. VENLAFAXINE [Concomitant]
     Active Substance: VENLAFAXINE HYDROCHLORIDE
     Indication: DEPRESSION
     Dosage: UNK
  8. QUETIAPINE. [Suspect]
     Active Substance: QUETIAPINE
     Indication: MOOD SWINGS
     Dosage: 400 MILLIGRAM, QD (UPTITRATE THE QUETIAPINE)
     Route: 048
     Dates: start: 2017
  9. QUETIAPINE. [Suspect]
     Active Substance: QUETIAPINE
     Indication: BIPOLAR DISORDER
     Dosage: 50 MILLIGRAM, QD
  10. LAMOTRIGINE. [Suspect]
     Active Substance: LAMOTRIGINE
     Dosage: UNK UNK, QW
  11. ARIPIPRAZOLE. [Suspect]
     Active Substance: ARIPIPRAZOLE
     Dosage: UNK
  12. GABAPENTIN. [Suspect]
     Active Substance: GABAPENTIN
     Indication: PRODUCT USED FOR UNKNOWN INDICATION
     Dosage: 800 MILLIGRAM, QD
  13. COTRIMOXAZOLE [Concomitant]
     Active Substance: SULFAMETHOXAZOLE\TRIMETHOPRIM
     Indication: URINARY TRACT INFECTION
  14. QUETIAPINE. [Suspect]
     Active Substance: QUETIAPINE
     Dosage: 400 MILLIGRAM, QD (UPTITRATE THE QUETIAPINE)
  15. LAMOTRIGINE. [Suspect]
     Active Substance: LAMOTRIGINE
     Dosage: 200 MILLIGRAM, QD (INCREMENTALLY INCREASED)
  16. COTRIMOXAZOLE [Concomitant]
     Active Substance: SULFAMETHOXAZOLE\TRIMETHOPRIM
     Indication: KLEBSIELLA INFECTION
     Dosage: UNK
  17. LAMOTRIGINE. [Suspect]
     Active Substance: LAMOTRIGINE
     Indication: BIPOLAR DISORDER
     Dosage: 200 MILLIGRAM, QD (INCREMENTALLY INCREASED)
     Route: 048
     Dates: start: 2017
  18. LAMOTRIGINE. [Suspect]
     Active Substance: LAMOTRIGINE
     Indication: MOOD SWINGS
     Dosage: 25 MILLIGRAM, QD
     Route: 048
     Dates: start: 2017
  19. CARBAMAZEPINE. [Suspect]
     Active Substance: CARBAMAZEPINE
     Indication: DEPRESSION
     Dosage: 200 MG/D, MAX. TO 800 MG/D, QD
  20. LITHIUM. [Suspect]
     Active Substance: LITHIUM
     Indication: DEPRESSION
     Dosage: MAXIUM DOSE OF 1000 MG/DAY AT REINTRODUCTION , QD
  21. LITHIUM. [Suspect]
     Active Substance: LITHIUM
     Indication: BIPOLAR DISORDER
     Dosage: UNK
  22. PERAZINE [Suspect]
     Active Substance: PERAZINE
     Indication: BIPOLAR DISORDER
  23. LEVOTHYROXINE. [Concomitant]
     Active Substance: LEVOTHYROXINE
     Indication: HYPOTHYROIDISM
     Dosage: UNK
     Dates: start: 2015, end: 2016
  24. QUETIAPINE. [Suspect]
     Active Substance: QUETIAPINE
     Dosage: UNK
  25. ARIPIPRAZOLE. [Suspect]
     Active Substance: ARIPIPRAZOLE
     Dosage: 7.5 MILLIGRAM, QD (7.5 MG/D IN ORDER TO REDUCE DELUSIONS)
  26. LAMOTRIGINE. [Suspect]
     Active Substance: LAMOTRIGINE
     Dosage: 25 MILLIGRAM, QD
  27. LAMOTRIGINE. [Suspect]
     Active Substance: LAMOTRIGINE
     Dosage: UNK UNK, Q2W
  28. OLANZAPINE. [Suspect]
     Active Substance: OLANZAPINE
     Indication: PSYCHOTIC DISORDER
     Dosage: 5 MILLIGRAM, QD
  29. PERAZINE [Suspect]
     Active Substance: PERAZINE
     Indication: DEPRESSION
     Dosage: 150 MILLIGRAM, QD
  30. CEFTRIAXONE. [Concomitant]
     Active Substance: CEFTRIAXONE
     Indication: URINARY TRACT INFECTION
     Dosage: UNK
  31. QUETIAPINE. [Suspect]
     Active Substance: QUETIAPINE
     Indication: DEPRESSION
     Dosage: 50 MILLIGRAM, QD
     Route: 048
     Dates: start: 2017
  32. ARIPIPRAZOLE. [Suspect]
     Active Substance: ARIPIPRAZOLE
     Indication: BIPOLAR DISORDER
     Dosage: 7.5 MILLIGRAM, QD (7.5 MG/D IN ORDER TO REDUCE DELUSIONS)
     Route: 048
     Dates: start: 2017
  33. FLUOXETINE [Suspect]
     Active Substance: FLUOXETINE HYDROCHLORIDE
     Indication: DEPRESSION
     Dosage: 60 MILLIGRAM, QD
  34. BIPERIDEN [Suspect]
     Active Substance: BIPERIDEN
     Indication: MUSCULOSKELETAL STIFFNESS
     Dosage: 4 MILLIGRAM, QD

REACTIONS (21)
  - Persecutory delusion [Unknown]
  - Delusional perception [Recovered/Resolved]
  - Tremor [Recovered/Resolved]
  - Pyrexia [Recovered/Resolved]
  - Ideas of reference [Unknown]
  - Anxiety [Unknown]
  - Sopor [Recovered/Resolved]
  - Neuroleptic malignant syndrome [Recovered/Resolved]
  - Sleep disorder [Unknown]
  - Toxicity to various agents [Recovered/Resolved]
  - Altered state of consciousness [Recovered/Resolved]
  - Condition aggravated [Unknown]
  - Renal failure [Recovered/Resolved]
  - Therapeutic response decreased [Unknown]
  - Agitation [Recovered/Resolved]
  - Depressed mood [Unknown]
  - Mental impairment [Unknown]
  - Cogwheel rigidity [Recovered/Resolved]
  - Extrapyramidal disorder [Recovering/Resolving]
  - Drug ineffective [Unknown]
  - Product use in unapproved indication [Unknown]

NARRATIVE: CASE EVENT DATE: 2015
